FAERS Safety Report 6825921-1 (Version None)
Quarter: 2010Q3

REPORT INFORMATION
  Report Type: 
  Country: None (occurrence: None)
  Receive Date: 20100706
  Receipt Date: 20100622
  Transmission Date: 20110219
  Serious: Yes (Death)
  Sender: FDA-Public Use
  Company Number: 012431

PATIENT
  Sex: Male
  Weight: 90.7 kg

DRUGS (2)
  1. KEPPRA [Suspect]
     Indication: CONVULSION
     Dosage: (750 MG BID ORAL)
     Route: 048
     Dates: start: 20080101, end: 20100523
  2. DEPAKOTE [Suspect]
     Dosage: (500 MG TID, QHS ORAL)
     Route: 048
     Dates: end: 20100523

REACTIONS (3)
  - GRAND MAL CONVULSION [None]
  - LACERATION [None]
  - TREATMENT NONCOMPLIANCE [None]
